FAERS Safety Report 11872179 (Version 2)
Quarter: 2016Q1

REPORT INFORMATION
  Report Type: Spontaneous
  Country: BR (occurrence: BR)
  Receive Date: 20151228
  Receipt Date: 20160121
  Transmission Date: 20160526
  Serious: Yes (Hospitalization, Other)
  Sender: FDA-Public Use
  Company Number: BR-PFIZER INC-2015415276

PATIENT
  Age: 57 Year
  Sex: Female

DRUGS (6)
  1. PROCIMAX [Concomitant]
     Active Substance: CITALOPRAM HYDROBROMIDE
     Indication: DEPRESSION
  2. OMEPRAZOLE. [Concomitant]
     Active Substance: OMEPRAZOLE
     Dosage: UNK
  3. FRONTAL SL [Suspect]
     Active Substance: ACETAMINOPHEN\PHENYLPROPANOLAMINE HYDROCHLORIDE\PHENYLTOLOXAMINE
     Indication: DEPRESSION
     Dosage: MANY TIMES NEEDED, UNTIL 0.5 MG 6X/DAY
     Dates: start: 201507
  4. PROCIMAX [Concomitant]
     Active Substance: CITALOPRAM HYDROBROMIDE
     Indication: HEADACHE
     Dosage: UNK, AS NEEDED
  5. FRONTAL SL [Suspect]
     Active Substance: ACETAMINOPHEN\PHENYLPROPANOLAMINE HYDROCHLORIDE\PHENYLTOLOXAMINE
     Indication: PANIC DISORDER
     Dosage: 0.5 MG, 6X/DAY
  6. RIVOTRIL [Concomitant]
     Active Substance: CLONAZEPAM
     Indication: INSOMNIA
     Dosage: 2 MG, DAILY
     Dates: start: 2015

REACTIONS (11)
  - Asphyxia [Recovered/Resolved]
  - Malaise [Unknown]
  - Gastritis [Unknown]
  - Headache [Recovered/Resolved]
  - Sluggishness [Recovered/Resolved]
  - Panic attack [Recovered/Resolved]
  - Disease recurrence [Recovered/Resolved]
  - Dizziness [Unknown]
  - Condition aggravated [Recovered/Resolved]
  - Dyspnoea [Recovered/Resolved]
  - Feeling abnormal [Recovered/Resolved]

NARRATIVE: CASE EVENT DATE: 2015
